FAERS Safety Report 6672037-3 (Version None)
Quarter: 2010Q2

REPORT INFORMATION
  Report Type: 
  Country: None (occurrence: None)
  Receive Date: 20100406
  Receipt Date: 20100325
  Transmission Date: 20101027
  Serious: Yes (Life-Threatening, Hospitalization)
  Sender: FDA-Public Use
  Company Number: CLOF-1000089

PATIENT
  Age: 66 Year

DRUGS (6)
  1. EVOLTRA (CLOFARABINE) SOLUTION FOR INFUSION [Suspect]
     Indication: ACUTE MYELOID LEUKAEMIA
     Dosage: 33 MG, QDX5; INTRAVENOUS; 32 MG, QDX5; INTRAVENOUS
     Route: 042
     Dates: start: 20070825, end: 20070829
  2. EVOLTRA (CLOFARABINE) SOLUTION FOR INFUSION [Suspect]
     Indication: ACUTE MYELOID LEUKAEMIA
     Dosage: 33 MG, QDX5; INTRAVENOUS; 32 MG, QDX5; INTRAVENOUS
     Route: 042
     Dates: start: 20071002, end: 20071006
  3. DAUNORUBICIN HCL [Suspect]
     Indication: ACUTE MYELOID LEUKAEMIA
     Dosage: 82 MG, TIW; INTRAVENOUS; 80 MG, TIW; INTRAVENOUS
     Route: 042
     Dates: start: 20070825, end: 20070829
  4. DAUNORUBICIN HCL [Suspect]
     Indication: ACUTE MYELOID LEUKAEMIA
     Dosage: 82 MG, TIW; INTRAVENOUS; 80 MG, TIW; INTRAVENOUS
     Route: 042
     Dates: start: 20071002, end: 20071006
  5. MYLOTARG [Suspect]
     Indication: ACUTE MYELOID LEUKAEMIA
     Dosage: 4.9 MG, ONCE; INTRAVENOUS
     Route: 042
     Dates: start: 20070825, end: 20070825
  6. AMLODIPINE [Concomitant]

REACTIONS (1)
  - SUBCLAVIAN VEIN THROMBOSIS [None]
